FAERS Safety Report 9082363 (Version 1)
Quarter: 2013Q1

REPORT INFORMATION
  Report Type: Report from Study
  Country: US (occurrence: US)
  Receive Date: 20130130
  Receipt Date: 20130130
  Transmission Date: 20140127
  Serious: No
  Sender: FDA-Public Use
  Company Number: US-ABBOTT-12P-163-0972616-00

PATIENT
  Age: 39 Year
  Sex: Male

DRUGS (5)
  1. HUMIRA 40 MG/0.8 ML PEN [Suspect]
     Indication: CROHN^S DISEASE
     Dates: start: 20120821
  2. LEXAPRO [Concomitant]
     Indication: BIPOLAR DISORDER
     Dosage: 20MG DAILY
     Route: 048
  3. LAMICTAL [Concomitant]
     Indication: BIPOLAR DISORDER
     Route: 048
  4. ABILIFY [Concomitant]
     Indication: BIPOLAR DISORDER
     Dosage: 10MG DAILY
     Route: 048
  5. COLESTIPOL [Concomitant]
     Indication: CROHN^S DISEASE
     Route: 048

REACTIONS (1)
  - Headache [Not Recovered/Not Resolved]
